FAERS Safety Report 6293392-2 (Version None)
Quarter: 2009Q3

REPORT INFORMATION
  Report Type: 
  Country: None (occurrence: None)
  Receive Date: 20090731
  Receipt Date: 20090722
  Transmission Date: 20100115
  Serious: Yes (Hospitalization)
  Sender: FDA-Public Use
  Company Number: FR-AMGEN-UK350413

PATIENT
  Sex: Male
  Weight: 76 kg

DRUGS (1)
  1. VECTIBIX [Suspect]
     Indication: DRUG USE FOR UNKNOWN INDICATION
     Route: 042
     Dates: end: 20090602

REACTIONS (6)
  - CHILLS [None]
  - ERYTHEMA [None]
  - HYPERHIDROSIS [None]
  - MALAISE [None]
  - MUSCLE SPASMS [None]
  - NAUSEA [None]
